FAERS Safety Report 7988248-0 (Version None)
Quarter: 2011Q4

REPORT INFORMATION
  Report Type: 
  Country: None (occurrence: None)
  Receive Date: 20111216
  Receipt Date: 20110928
  Transmission Date: 20120403
  Serious: No
  Sender: FDA-Public Use
  Company Number: US-ABBOTT-11P-163-0858386-00

PATIENT
  Age: 60 Year
  Sex: Female

DRUGS (3)
  1. DIVIGEL [Suspect]
     Indication: NIGHT SWEATS
     Route: 061
     Dates: start: 20110701
  2. TWO UNSPECIFIED NATURAL PRODUCTS [Concomitant]
     Indication: PRODUCT USED FOR UNKNOWN INDICATION
  3. PROMETRIUM [Suspect]
     Indication: NIGHT SWEATS
     Dates: start: 20110701

REACTIONS (2)
  - WEIGHT INCREASED [None]
  - ABDOMINAL DISTENSION [None]
